FAERS Safety Report 7876855-5 (Version None)
Quarter: 2011Q4

REPORT INFORMATION
  Report Type: 
  Country: None (occurrence: None)
  Receive Date: 20111031
  Receipt Date: 20111025
  Transmission Date: 20120403
  Serious: Yes (Death)
  Sender: FDA-Public Use
  Company Number: PHHY2011RU95314

PATIENT
  Age: 79 Year
  Sex: Female

DRUGS (5)
  1. CONCOR [Concomitant]
  2. LASIX [Concomitant]
  3. ARIFON [Concomitant]
  4. GLEEVEC [Suspect]
     Route: 048
  5. PRESTARIUM [Concomitant]

REACTIONS (2)
  - PERIORBITAL OEDEMA [None]
  - OEDEMA PERIPHERAL [None]
